FAERS Safety Report 8966742 (Version 1)
Quarter: 2012Q4

REPORT INFORMATION
  Report Type: 
  Country: HK (occurrence: HK)
  Receive Date: 20121217
  Receipt Date: 20121217
  Transmission Date: 20130627
  Serious: Yes (Other)
  Sender: FDA-Public Use
  Company Number: HK-PFIZER INC-2012318564

PATIENT
  Sex: Female

DRUGS (2)
  1. ZOLOFT [Suspect]
     Dosage: UNK
     Route: 048
  2. SERTRALINE [Suspect]
     Dosage: UNK

REACTIONS (3)
  - Paralysis [Unknown]
  - Hyperhidrosis [Unknown]
  - Heart rate increased [Unknown]
